FAERS Safety Report 5055565-6 (Version None)
Quarter: 2006Q3

REPORT INFORMATION
  Report Type: 
  Country: None (occurrence: None)
  Receive Date: 20060714
  Receipt Date: 20060703
  Transmission Date: 20061208
  Serious: Yes (Life-Threatening)
  Sender: FDA-Public Use
  Company Number: 430034M06USA

PATIENT
  Age: 53 Year
  Sex: Female
  Weight: 69.14 kg

DRUGS (3)
  1. NOVANTRONE [Suspect]
     Indication: ACUTE MYELOID LEUKAEMIA
     Dates: start: 20060104, end: 20060108
  2. ETOPOSIDE [Suspect]
     Dates: start: 20060104, end: 20060108
  3. CYTARABINE [Suspect]
     Dates: start: 20060104, end: 20060108

REACTIONS (2)
  - ESCHERICHIA BACTERAEMIA [None]
  - HYPOTENSION [None]
